FAERS Safety Report 8021814-5 (Version None)
Quarter: 2011Q4

REPORT INFORMATION
  Report Type: 
  Country: None (occurrence: None)
  Receive Date: 20111229
  Receipt Date: 20111223
  Transmission Date: 20120403
  Serious: Yes (Other)
  Sender: FDA-Public Use
  Company Number: AUR-APL-2011-05958

PATIENT
  Age: 21 Year
  Sex: Female

DRUGS (3)
  1. RISPERIDONE [Suspect]
     Indication: DISTURBANCE IN SOCIAL BEHAVIOUR
     Dosage: 1.5 MG (1.5 MG, 1 IN 1 D), ORAL, ORAL
     Route: 048
     Dates: start: 20100415
  2. RISPERIDONE [Suspect]
     Indication: DISTURBANCE IN SOCIAL BEHAVIOUR
     Dosage: 1.5 MG (1.5 MG, 1 IN 1 D), ORAL, ORAL
     Route: 048
     Dates: start: 20100708, end: 20100929
  3. ORPHENADRINE CITRATE [Concomitant]

REACTIONS (2)
  - TARDIVE DYSKINESIA [None]
  - OCULOGYRIC CRISIS [None]
